FAERS Safety Report 11695486 (Version 1)
Quarter: 2015Q4

REPORT INFORMATION
  Report Type: Spontaneous
  Country: ID (occurrence: ID)
  Receive Date: 20151104
  Receipt Date: 20151104
  Transmission Date: 20160304
  Serious: Yes (Death, Other)
  Sender: FDA-Public Use
  Company Number: ID-ROCHE-1654967

PATIENT
  Age: 64 Year
  Sex: Male

DRUGS (5)
  1. CYCLOPHOSPHAMIDE. [Concomitant]
     Active Substance: CYCLOPHOSPHAMIDE
  2. CARBOPLATIN. [Concomitant]
     Active Substance: CARBOPLATIN
  3. MABTHERA [Suspect]
     Active Substance: RITUXIMAB
     Indication: NON-HODGKIN^S LYMPHOMA
     Route: 065
  4. MESNA. [Concomitant]
     Active Substance: MESNA
  5. HOLOXAN [Concomitant]
     Active Substance: IFOSFAMIDE

REACTIONS (2)
  - Angiopathy [Fatal]
  - General physical health deterioration [Unknown]
